FAERS Safety Report 11414061 (Version 5)
Quarter: 2015Q4

REPORT INFORMATION
  Report Type: Spontaneous
  Country: US (occurrence: US)
  Receive Date: 20150824
  Receipt Date: 20151229
  Transmission Date: 20160304
  Serious: Yes (Hospitalization)
  Sender: FDA-Public Use
  Company Number: US-BAYER-2015-407079

PATIENT
  Age: 23 Year
  Sex: Female
  Weight: 56.69 kg

DRUGS (1)
  1. MIRENA [Suspect]
     Active Substance: LEVONORGESTREL
     Indication: CONTRACEPTION
     Dosage: 20 MCG/24HR, CONT
     Route: 015
     Dates: start: 20100106, end: 20150603

REACTIONS (12)
  - Injury [None]
  - Uterine perforation [None]
  - Alopecia [None]
  - Ovarian adhesion [Not Recovered/Not Resolved]
  - Madarosis [None]
  - Pelvic adhesions [Not Recovered/Not Resolved]
  - Device use error [None]
  - Abdominal pain upper [None]
  - Uterine adhesions [Not Recovered/Not Resolved]
  - Intentional device misuse [None]
  - Device dislocation [None]
  - Device issue [None]

NARRATIVE: CASE EVENT DATE: 201004
